FAERS Safety Report 16798858 (Version 1)
Quarter: 2019Q4

REPORT INFORMATION
  Report Type: Spontaneous
  Country: US (occurrence: US)
  Receive Date: 20190911
  Receipt Date: 20190911
  Transmission Date: 20200122
  Serious: Yes (Other)
  Sender: FDA-Public Use
  Company Number: None

PATIENT
  Sex: Female

DRUGS (11)
  1. METOPROLOL. [Concomitant]
     Active Substance: METOPROLOL
  2. CYCLOSPORINE. [Suspect]
     Active Substance: CYCLOSPORINE
     Indication: RENAL TRANSPLANT
     Route: 048
     Dates: start: 20150628
  3. CALCIUM [Concomitant]
     Active Substance: CALCIUM
  4. ALLOPURINAL [Concomitant]
     Active Substance: ALLOPURINOL
  5. BACLOFEN. [Concomitant]
     Active Substance: BACLOFEN
  6. BUMETANIDE. [Concomitant]
     Active Substance: BUMETANIDE
  7. CLONIDINE. [Concomitant]
     Active Substance: CLONIDINE
  8. ALPRAZOLAM. [Concomitant]
     Active Substance: ALPRAZOLAM
  9. FISH OIL [Concomitant]
     Active Substance: FISH OIL
  10. MYCOPHENOLATE [Concomitant]
     Active Substance: MYCOPHENOLIC ACID
  11. OMEPRAZOLE. [Concomitant]
     Active Substance: OMEPRAZOLE

REACTIONS (3)
  - Bladder cancer [None]
  - Systemic lupus erythematosus [None]
  - Urinary tract infection [None]
